FAERS Safety Report 16006287 (Version 2)
Quarter: 2019Q1

REPORT INFORMATION
  Report Type: Spontaneous
  Country: PL (occurrence: PL)
  Receive Date: 20190226
  Receipt Date: 20190305
  Transmission Date: 20190418
  Serious: Yes (Other)
  Sender: FDA-Public Use
  Company Number: PL-PFIZER INC-2019076901

PATIENT
  Age: 54 Year
  Sex: Female

DRUGS (7)
  1. VITAMIN D [ERGOCALCIFEROL] [Suspect]
     Active Substance: ERGOCALCIFEROL
     Dosage: UNK
     Dates: start: 201411
  2. FULVESTRANT. [Suspect]
     Active Substance: FULVESTRANT
     Indication: METASTASES TO LUNG
     Dosage: 500 MG, UNK
     Dates: start: 201710
  3. TAMOXIFEN [Suspect]
     Active Substance: TAMOXIFEN
     Indication: INVASIVE DUCTAL BREAST CARCINOMA
     Dosage: 20 MG, QD
  4. DOCETAXEL. [Suspect]
     Active Substance: DOCETAXEL
     Dosage: UNK
     Dates: start: 201406
  5. DOXORUBICIN HCL [Suspect]
     Active Substance: DOXORUBICIN HYDROCHLORIDE
     Indication: INVASIVE DUCTAL BREAST CARCINOMA
     Dosage: 50 MG/M2, UNK
     Dates: start: 201406
  6. DOCETAXEL. [Suspect]
     Active Substance: DOCETAXEL
     Indication: INVASIVE DUCTAL BREAST CARCINOMA
     Dosage: 75 MG/M2, UNK
     Route: 065
     Dates: start: 201406
  7. CALCIUM [Suspect]
     Active Substance: CALCIUM
     Dosage: UNK
     Dates: start: 201411

REACTIONS (2)
  - Neoplasm progression [Unknown]
  - Dyspnoea [Unknown]
